FAERS Safety Report 17444737 (Version 7)
Quarter: 2020Q2

REPORT INFORMATION
  Report Type: Report from Study
  Country: JP (occurrence: JP)
  Receive Date: 20200221
  Receipt Date: 20200513
  Transmission Date: 20200713
  Serious: Yes (Hospitalization)
  Sender: FDA-Public Use
  Company Number: JP-EISAI MEDICAL RESEARCH-EC-2020-070389

PATIENT
  Age: 51 Year
  Sex: Male
  Weight: 54 kg

DRUGS (12)
  1. NIVOLUMAB [Suspect]
     Active Substance: NIVOLUMAB
     Indication: CHOLANGIOCARCINOMA
     Route: 041
     Dates: start: 20200214, end: 20200323
  2. AMLODIPINE BESILATE [Concomitant]
     Active Substance: AMLODIPINE BESYLATE
  3. SULBACILLIN [Concomitant]
     Active Substance: AMPICILLIN SODIUM\SULBACTAM SODIUM
  4. BILANOA [Concomitant]
     Active Substance: BILASTINE
  5. LENVATINIB [Suspect]
     Active Substance: LENVATINIB
     Indication: CHOLANGIOCARCINOMA
     Route: 048
     Dates: start: 20200214, end: 20200305
  6. LENVATINIB [Suspect]
     Active Substance: LENVATINIB
     Route: 048
     Dates: start: 20200306, end: 202004
  7. NARUSUS [Concomitant]
     Active Substance: HYDROMORPHONE HYDROCHLORIDE
  8. PASTARON [Concomitant]
     Active Substance: UREA
  9. OLMESARTAN OD [Concomitant]
     Active Substance: OLMESARTAN MEDOXOMIL
  10. LOXOPROFEN [Concomitant]
     Active Substance: LOXOPROFEN
  11. REBAMIPIDE [Concomitant]
     Active Substance: REBAMIPIDE
  12. FERRUM [Concomitant]
     Active Substance: FERROUS FUMARATE

REACTIONS (2)
  - Cerebral haemorrhage [Not Recovered/Not Resolved]
  - Tumour associated fever [Recovered/Resolved]

NARRATIVE: CASE EVENT DATE: 20200215
